FAERS Safety Report 6930051-4 (Version None)
Quarter: 2010Q3

REPORT INFORMATION
  Report Type: 
  Country: None (occurrence: None)
  Receive Date: 20100809
  Receipt Date: 20100201
  Transmission Date: 20110219
  Serious: No
  Sender: FDA-Public Use
  Company Number: US-001481

PATIENT
  Sex: Male
  Weight: 83.9154 kg

DRUGS (8)
  1. DEGARELIX (240 MG, 80 MG) [Suspect]
     Indication: PROSTATE CANCER
     Dosage: (240 MG 1X, 2 INJECTION OF 120 MG EACH SUBCUTANEOUS) , (80 MG 1X/MONTH SUBCUTANEOUS)
     Route: 058
     Dates: start: 20091125, end: 20091125
  2. DEGARELIX (240 MG, 80 MG) [Suspect]
     Indication: PROSTATE CANCER
     Dosage: (240 MG 1X, 2 INJECTION OF 120 MG EACH SUBCUTANEOUS) , (80 MG 1X/MONTH SUBCUTANEOUS)
     Route: 058
     Dates: start: 20090129, end: 20100127
  3. COREG [Concomitant]
  4. PLAVIX [Concomitant]
  5. LASIX [Concomitant]
  6. ZOLOFT [Concomitant]
  7. ALDACTONE [Concomitant]
  8. NITROGLYCERIN [Concomitant]

REACTIONS (3)
  - INJECTION SITE ERYTHEMA [None]
  - INJECTION SITE PAIN [None]
  - INJECTION SITE SWELLING [None]
